FAERS Safety Report 5517929-3 (Version None)
Quarter: 2007Q4

REPORT INFORMATION
  Report Type: 
  Country: None (occurrence: None)
  Receive Date: 20071107
  Receipt Date: 20070503
  Transmission Date: 20080405
  Serious: Yes (Life-Threatening, Hospitalization, Disabling, Other)
  Sender: FDA-Public Use
  Company Number: WAES 0705USA00841

PATIENT
  Age: 64 Year
  Sex: Male

DRUGS (7)
  1. MEVACOR [Suspect]
     Indication: HYPERCHOLESTEROLAEMIA
     Dosage: 20 MG/DAILY/PO 40 MG/DAILY PO
     Route: 048
     Dates: end: 20070328
  2. MEVACOR [Suspect]
     Indication: HYPERCHOLESTEROLAEMIA
     Dosage: 20 MG/DAILY/PO 40 MG/DAILY PO
     Route: 048
     Dates: start: 20060401
  3. DISALCID [Concomitant]
  4. FLEXERIL [Concomitant]
  5. MOTRIN [Concomitant]
  6. ASPIRIN [Concomitant]
  7. VITAMINS (UNSPECIFIED) [Concomitant]

REACTIONS (5)
  - BACK PAIN [None]
  - BLOOD CHOLESTEROL INCREASED [None]
  - MUSCLE SPASMS [None]
  - NECK PAIN [None]
  - STEVENS-JOHNSON SYNDROME [None]
